FAERS Safety Report 11217492 (Version 1)
Quarter: 2015Q2

REPORT INFORMATION
  Report Type: Spontaneous
  Country: PT (occurrence: PT)
  Receive Date: 20150625
  Receipt Date: 20150625
  Transmission Date: 20150821
  Serious: Yes (Hospitalization)
  Sender: FDA-Public Use
  Company Number: PHHY2015PT073128

PATIENT
  Age: 86 Year
  Sex: Male

DRUGS (1)
  1. METFORMIN [Suspect]
     Active Substance: METFORMIN HYDROCHLORIDE
     Indication: HYPERGLYCAEMIA
     Route: 065

REACTIONS (6)
  - Rash erythematous [Recovering/Resolving]
  - Pustular psoriasis [Recovering/Resolving]
  - Toxic skin eruption [Recovering/Resolving]
  - Dermatitis contact [Recovering/Resolving]
  - Skin reaction [Recovering/Resolving]
  - Rash pustular [Recovering/Resolving]
